FAERS Safety Report 7452083-2 (Version None)
Quarter: 2011Q2

REPORT INFORMATION
  Report Type: 
  Country: None (occurrence: None)
  Receive Date: 20110502
  Receipt Date: 20110425
  Transmission Date: 20111010
  Serious: Yes (Other)
  Sender: FDA-Public Use
  Company Number: US-ELI_LILLY_AND_COMPANY-US201012001453

PATIENT
  Sex: Female

DRUGS (4)
  1. HUMALOG [Suspect]
     Indication: TYPE 1 DIABETES MELLITUS
     Dosage: UNK, AS NEEDED
     Dates: start: 19970101
  2. LANTUS [Concomitant]
     Dosage: UNK
  3. HUMULIN R [Suspect]
  4. HUMULIN N [Suspect]

REACTIONS (3)
  - VISUAL ACUITY REDUCED [None]
  - RETINAL OPERATION [None]
  - CATARACT [None]
